FAERS Safety Report 7522617-8 (Version None)
Quarter: 2011Q2

REPORT INFORMATION
  Report Type: 
  Country: None (occurrence: None)
  Receive Date: 20110525
  Receipt Date: 20110510
  Transmission Date: 20111010
  Serious: Yes (Hospitalization, Other)
  Sender: FDA-Public Use
  Company Number: FK201100966

PATIENT
  Age: 54 Year
  Sex: Female
  Weight: 73.0291 kg

DRUGS (3)
  1. DOXIL [Suspect]
     Indication: MULTIPLE MYELOMA
     Dosage: 56 MG, D4 OF EACH CYCLE; 3Q WEEKS, INTRAVNEOUS (NOT OTHERWISE SPECIFIED)
     Route: 042
     Dates: start: 20110226
  2. DEXAMETHASONE SODIUM PHOSPHATE [Suspect]
     Indication: MULTIPLE MYELOMA
     Dosage: 40 MG, C1 AND C2, D1 ONLY, INTRAVENOUS (NOT OTHERWISE SPECIFIED)
     Route: 042
     Dates: start: 20110224, end: 20110315
  3. VELCADE [Suspect]
     Indication: MULTIPLE MYELOMA
     Dosage: 1.3 MG/M2, 2XWKLY (D1,D4)Q7D;1 WK OFF;Q14D, INTRAVENOUS (NOT OTHERWISE SPECIFIED)
     Route: 042
     Dates: start: 20110224

REACTIONS (3)
  - LOBAR PNEUMONIA [None]
  - BACTERIAL TEST POSITIVE [None]
  - CATHETER SITE INFECTION [None]
